FAERS Safety Report 9923976 (Version 3)
Quarter: 2015Q1

REPORT INFORMATION
  Report Type: Report from Study
  Country: US (occurrence: US)
  Receive Date: 20140225
  Receipt Date: 20150106
  Transmission Date: 20150721
  Serious: No
  Sender: FDA-Public Use
  Company Number: US-VERTEX PHARMACEUTICALS INC-2014-000811

PATIENT
  Age: 30 Year
  Sex: Male

DRUGS (2)
  1. IVACAFTOR [Suspect]
     Active Substance: IVACAFTOR
     Indication: CYSTIC FIBROSIS
     Dosage: 150 MG, BID
     Route: 048
     Dates: start: 20120316
  2. ANTIDEPRESSANTS [Concomitant]
     Active Substance: UNSPECIFIED INGREDIENT
     Indication: DEPRESSION

REACTIONS (6)
  - Skin odour abnormal [Unknown]
  - Nasopharyngitis [Recovering/Resolving]
  - Malaise [Unknown]
  - Hyperhidrosis [Unknown]
  - Breath odour [Unknown]
  - Cough [Unknown]

NARRATIVE: CASE EVENT DATE: 201412
